FAERS Safety Report 15343883 (Version 2)
Quarter: 2018Q3

REPORT INFORMATION
  Report Type: Spontaneous
  Country: US (occurrence: US)
  Receive Date: 20180903
  Receipt Date: 20180911
  Transmission Date: 20181010
  Serious: Yes (Hospitalization, Other)
  Sender: FDA-Public Use
  Company Number: US-009507513-1808USA012841

PATIENT
  Age: 75 Year
  Sex: Male
  Weight: 116.3 kg

DRUGS (1)
  1. KEYTRUDA [Suspect]
     Active Substance: PEMBROLIZUMAB
     Indication: BLADDER TRANSITIONAL CELL CARCINOMA
     Dosage: 200 MG, ONCE, GIVEN X 1
     Route: 042
     Dates: start: 20180703, end: 20180703

REACTIONS (3)
  - Hepatic cirrhosis [Unknown]
  - Hepatic enzyme increased [Unknown]
  - Immune-mediated hepatitis [Unknown]

NARRATIVE: CASE EVENT DATE: 201808
